FAERS Safety Report 12564386 (Version 3)
Quarter: 2016Q3

REPORT INFORMATION
  Report Type: Report from Study
  Country: EC (occurrence: EC)
  Receive Date: 20160718
  Receipt Date: 20160921
  Transmission Date: 20161109
  Serious: Yes (Hospitalization)
  Sender: FDA-Public Use
  Company Number: EC-ROCHE-1795025

PATIENT
  Age: 28 Year
  Sex: Male

DRUGS (2)
  1. MABTHERA [Suspect]
     Active Substance: RITUXIMAB
     Indication: NON-HODGKIN^S LYMPHOMA
  2. MABTHERA [Suspect]
     Active Substance: RITUXIMAB
     Indication: LEUKAEMIA
     Route: 042
     Dates: start: 20151106

REACTIONS (5)
  - Decreased immune responsiveness [Recovering/Resolving]
  - Infection [Recovering/Resolving]
  - Bacterial infection [Recovering/Resolving]
  - Leukaemia [Not Recovered/Not Resolved]
  - Gait disturbance [Not Recovered/Not Resolved]

NARRATIVE: CASE EVENT DATE: 20160512
